FAERS Safety Report 19105225 (Version 1)
Quarter: 2021Q2

REPORT INFORMATION
  Report Type: Other
  Country: NL (occurrence: NL)
  Receive Date: 20210408
  Receipt Date: 20210408
  Transmission Date: 20210717
  Serious: Yes (Death)
  Sender: FDA-Public Use
  Company Number: NL-FDC LIMITED-2109059

PATIENT
  Age: 3 Week
  Sex: Male

DRUGS (3)
  1. CIPROFLOXACIN. [Suspect]
     Active Substance: CIPROFLOXACIN
     Indication: PNEUMONIA PSEUDOMONAL
     Route: 065
  2. MEROPENEM. [Concomitant]
     Active Substance: MEROPENEM
     Route: 065
  3. TOBRAMYCIN. [Concomitant]
     Active Substance: TOBRAMYCIN
     Route: 065

REACTIONS (1)
  - Drug ineffective [Fatal]
